FAERS Safety Report 4467130-X (Version None)
Quarter: 2004Q4

REPORT INFORMATION
  Report Type: 
  Country: None (occurrence: None)
  Receive Date: 20041004
  Receipt Date: 20041004
  Transmission Date: 20050328
  Serious: Yes (Disabling, Other)
  Sender: FDA-Public Use
  Company Number: None

PATIENT
  Sex: Female

DRUGS (1)
  1. TIMOLOL 0.5 % GFS [Suspect]
     Indication: OPEN ANGLE GLAUCOMA
     Dosage: ON DROP Q AM 0.5
     Dates: start: 20030825

REACTIONS (3)
  - EYE DISCHARGE [None]
  - PHARMACEUTICAL PRODUCT COMPLAINT [None]
  - VISION BLURRED [None]
